FAERS Safety Report 5247436-7 (Version None)
Quarter: 2007Q1

REPORT INFORMATION
  Report Type: 
  Country: None (occurrence: None)
  Receive Date: 20070223
  Receipt Date: 20070223
  Transmission Date: 20070707
  Serious: Yes (Other)
  Sender: FDA-Public Use
  Company Number: None

PATIENT
  Sex: Female

DRUGS (1)
  1. TEGRETOL [Suspect]
     Indication: EPILEPSY
     Dosage: 1 TAB 4X DAILY  ORAL
     Route: 048
     Dates: start: 19940101

REACTIONS (2)
  - CONVULSION [None]
  - OVERDOSE [None]
